FAERS Safety Report 15726640 (Version 1)
Quarter: 2018Q4

REPORT INFORMATION
  Report Type: Spontaneous
  Country: US (occurrence: US)
  Receive Date: 20181217
  Receipt Date: 20181217
  Transmission Date: 20190205
  Serious: No
  Sender: FDA-Public Use
  Company Number: US-NOVOPROD-591153

PATIENT
  Sex: Female

DRUGS (3)
  1. LEVEMIR [Suspect]
     Active Substance: INSULIN DETEMIR
     Dosage: 68 U, BID
     Route: 058
     Dates: start: 201701, end: 201801
  2. LEVEMIR [Suspect]
     Active Substance: INSULIN DETEMIR
     Dosage: 68 U, BID
     Route: 058
     Dates: start: 201701, end: 201801
  3. LEVEMIR [Suspect]
     Active Substance: INSULIN DETEMIR
     Indication: TYPE 2 DIABETES MELLITUS
     Dosage: 68 U, BID
     Route: 058
     Dates: start: 201701, end: 201801

REACTIONS (2)
  - Insulin resistance [Recovered/Resolved]
  - Blood glucose increased [Recovered/Resolved]

NARRATIVE: CASE EVENT DATE: 201701
